FAERS Safety Report 9160038 (Version 2)
Quarter: 2013Q2

REPORT INFORMATION
  Report Type: Spontaneous
  Country: US (occurrence: US)
  Receive Date: 20130313
  Receipt Date: 20130401
  Transmission Date: 20140414
  Serious: Yes (Death)
  Sender: FDA-Public Use
  Company Number: US-ELI_LILLY_AND_COMPANY-US201303002936

PATIENT
  Age: 57 Year
  Sex: Female

DRUGS (24)
  1. ADCIRCA [Suspect]
     Dosage: 20 MG, QD
     Route: 048
     Dates: start: 20110719
  2. ALDACTONE [Concomitant]
  3. AMLODIPINE [Concomitant]
  4. DERMADEX [Concomitant]
  5. HUMALOG 25% LISPRO, 75% NPL [Concomitant]
  6. HUMULIN 30% REGULAR, 70% NPH [Concomitant]
  7. LANTUS [Concomitant]
  8. LEXAPRO [Concomitant]
  9. PREDNISONE [Concomitant]
  10. PROCARDIA                          /00340701/ [Concomitant]
  11. SIMVASTIN [Concomitant]
  12. BUDESONIDE [Concomitant]
  13. CLONIDINE [Concomitant]
  14. ASPIRIN [Concomitant]
  15. ATIVAN [Concomitant]
  16. AVAPRO [Concomitant]
  17. COLACE [Concomitant]
  18. ICAR-C [Concomitant]
  19. LOPRESSOR [Concomitant]
  20. PRILOSEC [Concomitant]
     Dosage: 40 MG, UNK
  21. VENTOLIN                                /SCH/ [Concomitant]
  22. VISTARIL [Concomitant]
  23. XANAX [Concomitant]
  24. IPRATROPIUM [Concomitant]

REACTIONS (1)
  - Death [Fatal]
